FAERS Safety Report 8407564-1 (Version None)
Quarter: 2012Q2

REPORT INFORMATION
  Report Type: 
  Country: None (occurrence: None)
  Receive Date: 20120604
  Receipt Date: 20120523
  Transmission Date: 20120825
  Serious: Yes (Hospitalization, Other)
  Sender: FDA-Public Use
  Company Number: JP-JNJFOC-20120520017

PATIENT
  Age: 54 Year
  Sex: Male

DRUGS (12)
  1. PREGABALIN [Concomitant]
     Indication: PRODUCT USED FOR UNKNOWN INDICATION
     Route: 048
  2. SODIUM PICOSULFATE [Concomitant]
     Indication: PRODUCT USED FOR UNKNOWN INDICATION
     Dosage: LIQUID MEDICINE FOR INTERNAL  USE ( P.R.N)
     Route: 048
  3. ACETAMINOPHEN [Concomitant]
     Indication: PRODUCT USED FOR UNKNOWN INDICATION
     Route: 048
  4. PREGABALIN [Concomitant]
     Route: 048
  5. FENTANYL CITRATE [Suspect]
     Dosage: 50 MCG/HR AND 50 MCG PER TIME, WITH LOCKOUT TIME OF 10 MINUTES
     Route: 042
  6. ETODOLAC [Concomitant]
     Indication: PRODUCT USED FOR UNKNOWN INDICATION
     Route: 048
  7. AMITRIPTYLINE HCL [Concomitant]
     Indication: PRODUCT USED FOR UNKNOWN INDICATION
     Route: 048
  8. FENTANYL CITRATE [Suspect]
     Indication: ANALGESIC THERAPY
     Route: 042
  9. OXYCODONE HCL [Concomitant]
     Indication: PRODUCT USED FOR UNKNOWN INDICATION
     Route: 065
  10. MAGNESIUM OXIDE [Concomitant]
     Indication: PRODUCT USED FOR UNKNOWN INDICATION
     Dosage: 1 GRAM 1 PER 1 DAY
     Route: 048
  11. FENTANYL-100 [Suspect]
     Indication: CANCER PAIN
     Route: 062
  12. LAFUTIDINE [Concomitant]
     Indication: PRODUCT USED FOR UNKNOWN INDICATION
     Route: 048

REACTIONS (4)
  - RESPIRATORY DEPRESSION [None]
  - OVERDOSE [None]
  - SOMNOLENCE [None]
  - MONOPLEGIA [None]
